FAERS Safety Report 9127914 (Version 2)
Quarter: 2013Q1

REPORT INFORMATION
  Report Type: Spontaneous
  Country: US (occurrence: US)
  Receive Date: 20130122
  Receipt Date: 20130122
  Transmission Date: 20140127
  Serious: No
  Sender: FDA-Public Use
  Company Number: US-TEVA-272352USA

PATIENT
  Sex: Female

DRUGS (2)
  1. SPRINTEC [Suspect]
     Indication: CONTRACEPTION
     Route: 048
  2. COPAXONE [Suspect]
     Indication: MULTIPLE SCLEROSIS
     Dosage: 20 MILLIGRAM DAILY;
     Route: 058
     Dates: start: 20111125

REACTIONS (1)
  - Delivery [Unknown]
